FAERS Safety Report 9915044 (Version 1)
Quarter: 2014Q1

REPORT INFORMATION
  Report Type: Spontaneous
  Country: US (occurrence: US)
  Receive Date: 20140220
  Receipt Date: 20140220
  Transmission Date: 20141002
  Serious: Yes (Hospitalization)
  Sender: FDA-Public Use
  Company Number: US-ASTRAZENECA-2014SE11561

PATIENT
  Age: 70 Year
  Sex: Female
  Weight: 49 kg

DRUGS (8)
  1. SYMBICORT [Suspect]
     Indication: CHRONIC OBSTRUCTIVE PULMONARY DISEASE
     Dosage: 160/4.5, 2 PUFFS BID
     Route: 055
  2. OMEPRAZOLE [Suspect]
     Indication: GASTROOESOPHAGEAL REFLUX DISEASE
     Dosage: 1 PILL, UNKNOWN
     Route: 048
     Dates: end: 201401
  3. RANITIDINE [Concomitant]
     Indication: GASTROOESOPHAGEAL REFLUX DISEASE
     Route: 048
     Dates: start: 20140211
  4. ALBUTEROL [Concomitant]
     Indication: CHRONIC OBSTRUCTIVE PULMONARY DISEASE
     Dosage: 2.5MG/3ML PRN
     Route: 055
  5. LINZESS [Concomitant]
     Indication: CONSTIPATION
  6. IBUPROFEN [Concomitant]
     Indication: HEADACHE
     Dosage: PRN
     Route: 048
  7. IBUPROFEN [Concomitant]
     Indication: PAIN
     Dosage: PRN
     Route: 048
  8. TYLENOL [Concomitant]
     Indication: HEADACHE
     Dosage: PRN
     Route: 048

REACTIONS (3)
  - Upper respiratory tract infection [Recovered/Resolved]
  - Pneumonia [Recovered/Resolved]
  - Alopecia [Not Recovered/Not Resolved]
